FAERS Safety Report 10697486 (Version 2)
Quarter: 2015Q1

REPORT INFORMATION
  Report Type: Report from Study
  Country: CA (occurrence: None)
  Receive Date: 20150106
  Receipt Date: 20150129
  Transmission Date: 20150721
  Serious: Yes (Death, Hospitalization)
  Sender: FDA-Public Use
  Company Number: 2014AP006555

PATIENT
  Age: 57 Year
  Sex: Male
  Weight: 99 kg

DRUGS (13)
  1. SLOW K (POTASSIUM CHLORIDE) [Concomitant]
  2. SINGULAIR [Concomitant]
     Active Substance: MONTELUKAST SODIUM
  3. AMLODIPINE [Concomitant]
     Active Substance: AMLODIPINE BESYLATE
  4. LASIX /0032601/ (FUROSEMIDE) [Concomitant]
  5. ATORVASTATIN [Concomitant]
     Active Substance: ATORVASTATIN
  6. DEFERIPRONE (DEFERIPRONE) TABLET [Suspect]
     Active Substance: DEFERIPRONE
     Indication: HEREDITARY HAEMOCHROMATOSIS
     Route: 048
     Dates: start: 20140917
  7. ASPIRIN (ACETYLSALICYLIC ACID) [Concomitant]
     Active Substance: ASPIRIN
  8. SPIRIVA (TIOTROPIUM BROMIDE) [Concomitant]
  9. DEFERIPRONE (DEFERIPRONE) TABLET [Suspect]
     Active Substance: DEFERIPRONE
     Indication: IRON OVERLOAD
     Route: 048
     Dates: start: 20140917
  10. RAMIPRIL/HYDROCHLOORTHIAZIDE (HYDROCHLOROTHIAZIDE, RAMIPRIL) [Concomitant]
  11. ADVAIR DISKUS [Concomitant]
     Active Substance: FLUTICASONE PROPIONATE\SALMETEROL XINAFOATE
  12. SPIRONOLACTONE. [Concomitant]
     Active Substance: SPIRONOLACTONE
  13. SALBUTAMOL [Concomitant]
     Active Substance: ALBUTEROL

REACTIONS (6)
  - Pseudomonal sepsis [None]
  - Agranulocytosis [None]
  - Cardiac failure congestive [None]
  - Multi-organ failure [None]
  - Atrial fibrillation [None]
  - Acute kidney injury [None]

NARRATIVE: CASE EVENT DATE: 201412
